FAERS Safety Report 9082455 (Version 1)
Quarter: 2013Q1

REPORT INFORMATION
  Report Type: Spontaneous
  Country: US (occurrence: US)
  Receive Date: 20130218
  Receipt Date: 20130218
  Transmission Date: 20140127
  Serious: No
  Sender: FDA-Public Use
  Company Number: US-PFIZER INC-2013060183

PATIENT
  Age: 21 Year
  Sex: Female
  Weight: 49.89 kg

DRUGS (8)
  1. EFFEXOR XR [Suspect]
     Indication: POST-TRAUMATIC STRESS DISORDER
     Dosage: 75 MG, 1X/DAY
     Dates: start: 200103
  2. EFFEXOR XR [Suspect]
     Indication: ANXIETY
     Dosage: 225 MG, 1X/DAY
  3. EFFEXOR XR [Suspect]
     Indication: PANIC ATTACK
     Dosage: 150 MG, 1X/DAY
  4. EFFEXOR XR [Suspect]
     Dosage: 75 MG, 1X/DAY
  5. EFFEXOR XR [Suspect]
     Dosage: 37.5 MG, 1X/DAY
  6. EFFEXOR XR [Suspect]
     Dosage: 75 MG, 1X/DAY
  7. EFFEXOR XR [Suspect]
     Dosage: UNK
  8. VALIUM [Concomitant]
     Indication: DEPRESSION
     Dosage: 5 MG, 2X/DAY

REACTIONS (12)
  - Drug ineffective [Unknown]
  - Malaise [Unknown]
  - Dizziness [Unknown]
  - Diarrhoea [Unknown]
  - Vomiting [Unknown]
  - Feeling abnormal [Unknown]
  - Mania [Unknown]
  - Nausea [Unknown]
  - Fatigue [Unknown]
  - Hypersomnia [Unknown]
  - Fear [Unknown]
  - Blood pressure abnormal [Unknown]
